FAERS Safety Report 5106556-8 (Version None)
Quarter: 2006Q3

REPORT INFORMATION
  Report Type: 
  Country: None (occurrence: None)
  Receive Date: 20060918
  Receipt Date: 20060908
  Transmission Date: 20061208
  Serious: Yes (Disabling)
  Sender: FDA-Public Use
  Company Number: FR-GLAXOSMITHKLINE-B0437410A

PATIENT
  Age: 18 Month
  Sex: Female

DRUGS (3)
  1. LAMICTAL [Suspect]
     Indication: EPILEPSY
  2. SPECIAFOLDINE [Suspect]
     Indication: EPILEPSY
  3. TEGRETOL [Suspect]
     Indication: EPILEPSY

REACTIONS (4)
  - ATROPHY [None]
  - DRUG EXPOSURE DURING PREGNANCY [None]
  - LIVEDO RETICULARIS [None]
  - MYOPATHY [None]
